FAERS Safety Report 14859183 (Version 1)
Quarter: 2018Q2

REPORT INFORMATION
  Report Type: Spontaneous
  Country: FR (occurrence: FR)
  Receive Date: 20180508
  Receipt Date: 20180508
  Transmission Date: 20180711
  Serious: Yes (Other)
  Sender: FDA-Public Use
  Company Number: FR-MERCK KGAA-2047381

PATIENT
  Age: 46 Year
  Sex: Female

DRUGS (1)
  1. NOVOTHYROX [Suspect]
     Active Substance: LEVOTHYROXINE SODIUM
     Indication: POST PROCEDURAL HYPOTHYROIDISM

REACTIONS (17)
  - Irritability [None]
  - Haematocrit increased [None]
  - Anxiety [None]
  - Stress [None]
  - Memory impairment [None]
  - Apathy [None]
  - Red blood cell count increased [None]
  - Diarrhoea [None]
  - White blood cell count increased [None]
  - Platelet count increased [None]
  - Tri-iodothyronine decreased [None]
  - Loss of libido [None]
  - Neutrophil count increased [None]
  - Blood thyroid stimulating hormone increased [None]
  - Bradycardia [None]
  - Haemoglobin increased [None]
  - Fatigue [None]

NARRATIVE: CASE EVENT DATE: 20170613
